FAERS Safety Report 20512490 (Version 1)
Quarter: 2022Q1

REPORT INFORMATION
  Report Type: Spontaneous
  Country: US (occurrence: None)
  Receive Date: 20220223
  Receipt Date: 20220223
  Transmission Date: 20220424
  Serious: Yes (Other)
  Sender: FDA-Public Use
  Company Number: None

PATIENT
  Age: 35 Year
  Sex: Male
  Weight: 121.5 kg

DRUGS (1)
  1. SUBOXONE [Suspect]
     Active Substance: BUPRENORPHINE HYDROCHLORIDE\NALOXONE HYDROCHLORIDE
     Indication: Dependence
     Dosage: OTHER QUANTITY : 1 1;?FREQUENCY : 3 TIMES A DAY;?
     Route: 060

REACTIONS (5)
  - Tooth loss [None]
  - Dental caries [None]
  - Tooth fracture [None]
  - Depressed mood [None]
  - Drug dependence [None]

NARRATIVE: CASE EVENT DATE: 20180101
